FAERS Safety Report 6244309-8 (Version None)
Quarter: 2009Q2

REPORT INFORMATION
  Report Type: 
  Country: None (occurrence: None)
  Receive Date: 20090623
  Receipt Date: 20090623
  Transmission Date: 20091009
  Serious: Yes (Other)
  Sender: FDA-Public Use
  Company Number: None

PATIENT
  Age: 49 Year
  Sex: Female
  Weight: 67.1324 kg

DRUGS (3)
  1. CEFDINIR [Suspect]
     Indication: SINUSITIS
     Dosage: 300MG 2X DAILY MOUTH 5-21 AM, PM 5-22 AM, PM 5-23 AM
     Route: 048
     Dates: start: 20090521
  2. CEFDINIR [Suspect]
     Indication: SINUSITIS
     Dosage: 300MG 2X DAILY MOUTH 5-21 AM, PM 5-22 AM, PM 5-23 AM
     Route: 048
     Dates: start: 20090522
  3. CEFDINIR [Suspect]
     Indication: SINUSITIS
     Dosage: 300MG 2X DAILY MOUTH 5-21 AM, PM 5-22 AM, PM 5-23 AM
     Route: 048
     Dates: start: 20090523

REACTIONS (2)
  - DISORIENTATION [None]
  - DIZZINESS [None]
